FAERS Safety Report 15340425 (Version 1)
Quarter: 2018Q3

REPORT INFORMATION
  Report Type: Spontaneous
  Country: US (occurrence: US)
  Receive Date: 20180831
  Receipt Date: 20180831
  Transmission Date: 20181010
  Serious: Yes (Other)
  Sender: FDA-Public Use
  Company Number: US-ASTRAZENECA-2018SF09113

PATIENT
  Age: 41 Year
  Sex: Female
  Weight: 43.1 kg

DRUGS (4)
  1. FASLODEX [Suspect]
     Active Substance: FULVESTRANT
     Indication: BREAST CANCER STAGE IV
     Route: 030
     Dates: start: 201805
  2. PERCOCET [Concomitant]
     Active Substance: ACETAMINOPHEN\OXYCODONE HYDROCHLORIDE
     Dosage: 10.0MG AS REQUIRED
     Route: 048
     Dates: start: 201806
  3. TRAMADOL. [Concomitant]
     Active Substance: TRAMADOL
     Dosage: 50.0MG AS REQUIRED
     Route: 048
     Dates: start: 201806
  4. DILAUDID [Concomitant]
     Active Substance: HYDROMORPHONE HYDROCHLORIDE
     Dosage: 2.0MG AS REQUIRED
     Route: 048
     Dates: start: 201806

REACTIONS (6)
  - Metastases to bone [Unknown]
  - Injection site discomfort [Unknown]
  - Feeling abnormal [Recovered/Resolved]
  - Sciatic nerve injury [Recovered/Resolved]
  - Gait disturbance [Recovered/Resolved]
  - Ataxia [Not Recovered/Not Resolved]

NARRATIVE: CASE EVENT DATE: 201805
